FAERS Safety Report 9629692 (Version 1)
Quarter: 2013Q4

REPORT INFORMATION
  Report Type: Spontaneous
  Country: GB (occurrence: GB)
  Receive Date: 20131017
  Receipt Date: 20131017
  Transmission Date: 20140711
  Serious: Yes (Disabling)
  Sender: FDA-Public Use
  Company Number: GB-JNJFOC-20131008516

PATIENT
  Age: 93 Year
  Sex: Female
  Weight: 49.89 kg

DRUGS (4)
  1. XARELTO [Suspect]
     Indication: PRODUCT USED FOR UNKNOWN INDICATION
     Route: 048
     Dates: start: 20130816
  2. DIGOXIN [Concomitant]
     Route: 065
  3. NIZATIDINE [Concomitant]
     Route: 065
  4. BUPRENORPHINE [Concomitant]
     Route: 065

REACTIONS (1)
  - Anxiety [Not Recovered/Not Resolved]
